FAERS Safety Report 14928563 (Version 3)
Quarter: 2018Q4

REPORT INFORMATION
  Report Type: Spontaneous
  Country: US (occurrence: US)
  Receive Date: 20180523
  Receipt Date: 20181216
  Transmission Date: 20190204
  Serious: No
  Sender: FDA-Public Use
  Company Number: US-SUPERNUS PHARMACEUTICALS, INC.-2018SUP00164

PATIENT
  Sex: Male
  Weight: 84.81 kg

DRUGS (4)
  1. TROKENDI XR [Suspect]
     Active Substance: TOPIRAMATE
     Indication: MIGRAINE PROPHYLAXIS
     Dosage: UNK UNK, 1X/DAY
     Route: 048
     Dates: start: 20180403, end: 2018
  2. TROKENDI XR [Suspect]
     Active Substance: TOPIRAMATE
     Indication: HEADACHE
  3. TROKENDI XR [Suspect]
     Active Substance: TOPIRAMATE
     Indication: MIGRAINE PROPHYLAXIS
     Dosage: UNK UNK, 1X/DAY
     Route: 048
     Dates: start: 2018, end: 2018
  4. TROKENDI XR [Suspect]
     Active Substance: TOPIRAMATE
     Indication: MIGRAINE PROPHYLAXIS
     Dosage: UNK UNK, 1X/DAY
     Route: 048
     Dates: start: 2018, end: 201805

REACTIONS (4)
  - Blood glucose increased [Recovered/Resolved]
  - Anger [Recovered/Resolved]
  - Abdominal pain [Recovered/Resolved]
  - Headache [Not Recovered/Not Resolved]

NARRATIVE: CASE EVENT DATE: 2018
